FAERS Safety Report 9850404 (Version 1)
Quarter: 2013Q4

REPORT INFORMATION
  Report Type: Spontaneous
  Country: US (occurrence: None)
  Receive Date: 20131127
  Receipt Date: 20131127
  Transmission Date: 20140711
  Serious: No
  Sender: FDA-Public Use
  Company Number: 224132LEO

PATIENT
  Age: 58 Year
  Sex: Female

DRUGS (2)
  1. PICATO [Suspect]
     Indication: ACTINIC KERATOSIS
     Dosage: (1 IN 1 D), TOPICAL
     Route: 061
     Dates: start: 20130924
  2. AMBIEN (ZOLPIDEM TARTRATE) [Concomitant]

REACTIONS (1)
  - Application site vesicles [None]
